FAERS Safety Report 4452784-4 (Version None)
Quarter: 2004Q3

REPORT INFORMATION
  Report Type: 
  Country: None (occurrence: None)
  Receive Date: 20040916
  Receipt Date: 20040901
  Transmission Date: 20050211
  Serious: Yes (Death, Hospitalization, Other)
  Sender: FDA-Public Use
  Company Number: 200410376BFR

PATIENT
  Age: 58 Year
  Sex: Male
  Weight: 67 kg

DRUGS (42)
  1. CIFLOX (CIPROFLOXACIN) [Suspect]
     Indication: ASCITES
     Dosage: SEE IMAGE
     Route: 042
     Dates: start: 20040312, end: 20040324
  2. CIFLOX (CIPROFLOXACIN) [Suspect]
     Indication: INFECTION PROPHYLAXIS
     Dosage: SEE IMAGE
     Route: 042
     Dates: start: 20040312, end: 20040324
  3. CIFLOX (CIPROFLOXACIN) [Suspect]
     Indication: SEPTIC SHOCK
     Dosage: SEE IMAGE
     Route: 042
     Dates: start: 20040312, end: 20040324
  4. CIFLOX (CIPROFLOXACIN) [Suspect]
     Indication: SERRATIA INFECTION
     Dosage: SEE IMAGE
     Route: 042
     Dates: start: 20040312, end: 20040324
  5. CIFLOX (CIPROFLOXACIN) [Suspect]
     Indication: ASCITES
     Dosage: SEE IMAGE
     Route: 042
     Dates: start: 20040401, end: 20040414
  6. CIFLOX (CIPROFLOXACIN) [Suspect]
     Indication: INFECTION PROPHYLAXIS
     Dosage: SEE IMAGE
     Route: 042
     Dates: start: 20040401, end: 20040414
  7. CIFLOX (CIPROFLOXACIN) [Suspect]
     Indication: SEPTIC SHOCK
     Dosage: SEE IMAGE
     Route: 042
     Dates: start: 20040401, end: 20040414
  8. CIFLOX (CIPROFLOXACIN) [Suspect]
     Indication: SERRATIA INFECTION
     Dosage: SEE IMAGE
     Route: 042
     Dates: start: 20040401, end: 20040414
  9. CIFLOX (CIPROFLOXACIN) [Suspect]
     Indication: ASCITES
     Dosage: SEE IMAGE
     Route: 042
     Dates: start: 20040429, end: 20040512
  10. CIFLOX (CIPROFLOXACIN) [Suspect]
     Indication: INFECTION PROPHYLAXIS
     Dosage: SEE IMAGE
     Route: 042
     Dates: start: 20040429, end: 20040512
  11. CIFLOX (CIPROFLOXACIN) [Suspect]
     Indication: SEPTIC SHOCK
     Dosage: SEE IMAGE
     Route: 042
     Dates: start: 20040429, end: 20040512
  12. CIFLOX (CIPROFLOXACIN) [Suspect]
     Indication: SERRATIA INFECTION
     Dosage: SEE IMAGE
     Route: 042
     Dates: start: 20040429, end: 20040512
  13. RIMIFON [Suspect]
     Indication: BONE TUBERCULOSIS
     Dosage: 150 MG, TOTAL DAILY, INTRAVENOUS
     Route: 042
     Dates: start: 20040324, end: 20040512
  14. RIMIFON [Suspect]
     Indication: INTERVERTEBRAL DISCITIS
     Dosage: 150 MG, TOTAL DAILY, INTRAVENOUS
     Route: 042
     Dates: start: 20040324, end: 20040512
  15. AUGMENTIN [Suspect]
     Indication: ASCITES
     Dosage: SEE IMAGE
     Route: 042
     Dates: start: 20040312, end: 20040301
  16. AUGMENTIN [Suspect]
     Indication: INFECTION
     Dosage: SEE IMAGE
     Route: 042
     Dates: start: 20040312, end: 20040301
  17. AUGMENTIN [Suspect]
     Indication: INFECTION PROPHYLAXIS
     Dosage: SEE IMAGE
     Route: 042
     Dates: start: 20040312, end: 20040301
  18. AUGMENTIN [Suspect]
     Indication: TUBERCULOSIS
     Dosage: SEE IMAGE
     Route: 042
     Dates: start: 20040312, end: 20040301
  19. AUGMENTIN [Suspect]
     Indication: ASCITES
     Dosage: SEE IMAGE
     Route: 042
     Dates: start: 20040325, end: 20040401
  20. AUGMENTIN [Suspect]
     Indication: INFECTION
     Dosage: SEE IMAGE
     Route: 042
     Dates: start: 20040325, end: 20040401
  21. AUGMENTIN [Suspect]
     Indication: INFECTION PROPHYLAXIS
     Dosage: SEE IMAGE
     Route: 042
     Dates: start: 20040325, end: 20040401
  22. AUGMENTIN [Suspect]
     Indication: TUBERCULOSIS
     Dosage: SEE IMAGE
     Route: 042
     Dates: start: 20040325, end: 20040401
  23. RIFAMPICIN [Suspect]
     Indication: BONE TUBERCULOSIS
     Dosage: 600 MG, TOTAL DAILY, INTRAVENOUS
     Route: 042
     Dates: start: 20040324, end: 20040512
  24. RIFAMPICIN [Suspect]
     Indication: INTERVERTEBRAL DISCITIS
     Dosage: 600 MG, TOTAL DAILY, INTRAVENOUS
     Route: 042
     Dates: start: 20040324, end: 20040512
  25. FLUCONAZOLE [Suspect]
     Indication: CANDIDIASIS
     Dosage: SEE IMAGE
     Route: 042
     Dates: start: 20040330, end: 20040101
  26. FLUCONAZOLE [Suspect]
     Indication: CANDIDIASIS
     Dosage: SEE IMAGE
     Route: 042
     Dates: start: 20040429, end: 20040501
  27. TAZOCILLINE [Suspect]
     Indication: BONE TUBERCULOSIS
     Dates: start: 20040324, end: 20040325
  28. TAZOCILLINE [Suspect]
     Indication: INTERVERTEBRAL DISCITIS
     Dates: start: 20040324, end: 20040325
  29. TIENAM [Suspect]
     Indication: SEPTIC SHOCK
     Dosage: SEE IMAGE
     Dates: start: 20040401, end: 20040414
  30. TIENAM [Suspect]
     Indication: SERRATIA INFECTION
     Dosage: SEE IMAGE
     Dates: start: 20040401, end: 20040414
  31. TIENAM [Suspect]
     Indication: SEPTIC SHOCK
     Dosage: SEE IMAGE
     Dates: start: 20040429, end: 20040512
  32. TIENAM [Suspect]
     Indication: SERRATIA INFECTION
     Dosage: SEE IMAGE
     Dates: start: 20040429, end: 20040512
  33. ZEFFIX [Concomitant]
  34. SEROPRAM [Concomitant]
  35. MOPRAL [Concomitant]
  36. LASIX [Concomitant]
  37. MYAMBUTOL [Concomitant]
  38. FLAGYL [Concomitant]
  39. VANCOCIN HCL [Concomitant]
  40. CLINDAMYCIN HCL [Concomitant]
  41. GARDENALE [Concomitant]
  42. CEBEMYXINE [Concomitant]

REACTIONS (8)
  - ANAEMIA [None]
  - ANURIA [None]
  - CENTRAL LINE INFECTION [None]
  - CONVULSION [None]
  - HEPATITIS FULMINANT [None]
  - LUNG INFECTION [None]
  - SEPTIC SHOCK [None]
  - SERRATIA INFECTION [None]
